FAERS Safety Report 5860931-2 (Version None)
Quarter: 2008Q3

REPORT INFORMATION
  Report Type: 
  Country: None (occurrence: None)
  Receive Date: 20080827
  Receipt Date: 20080114
  Transmission Date: 20090109
  Serious: No
  Sender: FDA-Public Use
  Company Number: US-ABBOTT-08P-163-0433172-00

PATIENT
  Age: 72 Year
  Sex: Male
  Weight: 71.732 kg

DRUGS (2)
  1. NIASPAN [Suspect]
     Indication: BLOOD CHOLESTEROL INCREASED
     Dosage: UNCOATED
     Route: 048
     Dates: start: 20020101, end: 20071001
  2. NIASPAN [Suspect]
     Dosage: COATED
     Route: 048
     Dates: start: 20071001

REACTIONS (1)
  - PRURITUS [None]
